FAERS Safety Report 8454863-3 (Version None)
Quarter: 2012Q2

REPORT INFORMATION
  Report Type: 
  Country: None (occurrence: None)
  Receive Date: 20120621
  Receipt Date: 20120614
  Transmission Date: 20120825
  Serious: Yes (Hospitalization, Other)
  Sender: FDA-Public Use
  Company Number: US-JNJFOC-20120302831

PATIENT
  Sex: Male
  Weight: 124.74 kg

DRUGS (3)
  1. STELARA [Suspect]
     Route: 058
     Dates: start: 20120213
  2. STELARA [Suspect]
     Route: 058
     Dates: start: 20110928
  3. STELARA [Suspect]
     Indication: PSORIASIS
     Route: 058
     Dates: start: 20111026

REACTIONS (2)
  - RHABDOMYOLYSIS [None]
  - DRUG DOSE OMISSION [None]
